FAERS Safety Report 26153141 (Version 1)
Quarter: 2025Q4

REPORT INFORMATION
  Report Type: Spontaneous
  Country: CA (occurrence: CA)
  Receive Date: 20251214
  Receipt Date: 20251214
  Transmission Date: 20260117
  Serious: Yes (Hospitalization)
  Sender: JOHNSON AND JOHNSON
  Company Number: CA-JNJFOC-20251214179

PATIENT
  Sex: Male
  Weight: 99 kg

DRUGS (4)
  1. INFLIXIMAB [Suspect]
     Active Substance: INFLIXIMAB
     Indication: Crohn^s disease
     Route: 041
  2. EPIPEN [Suspect]
     Active Substance: EPINEPHRINE
     Indication: Product used for unknown indication
     Dosage: 0.3MG/0.3ML AUTO-INJECTOR
     Route: 030
  3. IMURAN [Concomitant]
     Active Substance: AZATHIOPRINE
     Indication: Product used for unknown indication
  4. PENTASA [Concomitant]
     Active Substance: MESALAMINE
     Indication: Product used for unknown indication

REACTIONS (2)
  - Arrhythmia [Recovering/Resolving]
  - Energy increased [Recovering/Resolving]
